FAERS Safety Report 5622348-5 (Version None)
Quarter: 2008Q1

REPORT INFORMATION
  Report Type: 
  Country: None (occurrence: None)
  Receive Date: 20080114
  Receipt Date: 20070723
  Transmission Date: 20080703
  Serious: Yes (Hospitalization)
  Sender: FDA-Public Use
  Company Number: A03200704771

PATIENT
  Age: 80 Year
  Sex: Male

DRUGS (10)
  1. PLAVIX [Suspect]
     Indication: VASCULAR GRAFT
     Dosage: 75 MG QD - ORAL
     Route: 048
     Dates: start: 20070525, end: 20070628
  2. PLAVIX [Suspect]
     Indication: VASCULAR GRAFT
     Dosage: 75 MG QD - ORAL
     Route: 048
     Dates: start: 20070101
  3. NIFEDIPINE [Concomitant]
  4. LEVOTHYROXINE SODIUM [Concomitant]
  5. ATENOLOL [Concomitant]
  6. ALLOPURINOL [Concomitant]
  7. GLIPIZIDE [Concomitant]
  8. LOSARTAN POTASSIUM [Concomitant]
  9. SIMVASTATIN [Concomitant]
  10. ACETYLSALICYLIC ACID SRT [Concomitant]

REACTIONS (2)
  - ANGINA PECTORIS [None]
  - CORONARY ARTERY OCCLUSION [None]
